FAERS Safety Report 10186057 (Version 1)
Quarter: 2014Q2

REPORT INFORMATION
  Report Type: Spontaneous
  Country: CA (occurrence: CA)
  Receive Date: 20140521
  Receipt Date: 20140521
  Transmission Date: 20141212
  Serious: Yes (Other)
  Sender: FDA-Public Use
  Company Number: CA-PFIZER INC-2014132054

PATIENT
  Age: 46 Year
  Sex: Female

DRUGS (7)
  1. ANTILYMPHOCYTE IMMUNOGLOBULINS [Suspect]
     Dosage: 6.0 MG/KG, UNK
  2. RAPAMUNE [Suspect]
  3. DACLIZUMAB [Suspect]
     Route: 042
  4. ENBREL [Suspect]
     Dosage: 50.0 MG, WEEKLY
     Route: 058
  5. ENBREL [Suspect]
     Dosage: 26.0 MG, UNK
     Route: 058
  6. MYCOPHENOLATE MOFETIL [Suspect]
     Dosage: UNK
  7. PROGRAF [Suspect]
     Dosage: 2.0 MG, EVERY 12 HOURS
     Route: 048

REACTIONS (3)
  - Transplant dysfunction [Unknown]
  - Pneumonia [Unknown]
  - Alopecia [Unknown]
